FAERS Safety Report 7699197-X (Version None)
Quarter: 2011Q3

REPORT INFORMATION
  Report Type: 
  Country: None (occurrence: None)
  Receive Date: 20110819
  Receipt Date: 20110801
  Transmission Date: 20111222
  Serious: No
  Sender: FDA-Public Use
  Company Number: US-BAYER-2011-060232

PATIENT
  Age: 41 Year
  Sex: Female

DRUGS (3)
  1. IBUPROFEN [Concomitant]
     Dosage: 600 MG, UNK
  2. INTERFERON BETA-1B [Suspect]
     Indication: MULTIPLE SCLEROSIS
     Dosage: 6 MIU, QOD
     Route: 058
     Dates: start: 20110606
  3. INTERFERON BETA-1B [Suspect]
     Dosage: 8 MIU, QOD
     Route: 058

REACTIONS (2)
  - FATIGUE [None]
  - INJECTION SITE ERYTHEMA [None]
